FAERS Safety Report 8257686-3 (Version None)
Quarter: 2012Q2

REPORT INFORMATION
  Report Type: 
  Country: None (occurrence: None)
  Receive Date: 20120403
  Receipt Date: 20120321
  Transmission Date: 20120825
  Serious: Yes (Other)
  Sender: FDA-Public Use
  Company Number: NL-MYLANLABS-2012S1006321

PATIENT
  Age: 41 Year
  Sex: Female

DRUGS (2)
  1. CLOZAPINE [Suspect]
     Indication: SCHIZOPHRENIA, DISORGANISED TYPE
     Dosage: 500MG DAILY
     Route: 065
  2. HYPERICUM [Suspect]
     Dosage: 3 TABLETS DAILY (HYPERICUM 300MG, HYPERICIN 0.36-0.84 AND }=9MG OF HYPERFORIN PER TABLET)
     Route: 048

REACTIONS (3)
  - DRUG INTERACTION [None]
  - SCHIZOPHRENIA [None]
  - ANTIPSYCHOTIC DRUG LEVEL BELOW THERAPEUTIC [None]
